FAERS Safety Report 7805194-3 (Version None)
Quarter: 2011Q4

REPORT INFORMATION
  Report Type: 
  Country: None (occurrence: None)
  Receive Date: 20111010
  Receipt Date: 20110927
  Transmission Date: 20120403
  Serious: Yes (Hospitalization, Other)
  Sender: FDA-Public Use
  Company Number: PT-AMGEN-PRTSP2011049769

PATIENT
  Age: 65 Year
  Sex: Male
  Weight: 68 kg

DRUGS (2)
  1. VECTIBIX [Suspect]
     Indication: COLORECTAL CANCER METASTATIC
     Dosage: 400 MG, Q2WK
     Route: 042
     Dates: start: 20101201, end: 20110901
  2. DIOVAN HCT [Concomitant]
     Indication: HYPERTENSION
     Dosage: 150 MG, QD
     Route: 048

REACTIONS (6)
  - RASH PUSTULAR [None]
  - PAIN [None]
  - SKIN INFECTION [None]
  - SKIN TOXICITY [None]
  - DERMATITIS ACNEIFORM [None]
  - RASH MACULO-PAPULAR [None]
